FAERS Safety Report 10455484 (Version 1)
Quarter: 2014Q3

REPORT INFORMATION
  Report Type: Spontaneous
  Country: KP (occurrence: KP)
  Receive Date: 20140916
  Receipt Date: 20140916
  Transmission Date: 20150326
  Serious: Yes (Death)
  Sender: FDA-Public Use
  Company Number: KP-CIPLA LTD.-2014KP01419

PATIENT

DRUGS (2)
  1. CYTOKINE INDUCED KILLER CELLS [Suspect]
     Active Substance: INVESTIGATIONAL PRODUCT
     Indication: IMMUNE ENHANCEMENT THERAPY
     Dosage: 10 TIMES, EVERY WEEK FOR 5 WEEKS AND THEN EVERY OTHER WEEK FOR 10 WEEKS
  2. GEMCITABINE [Suspect]
     Active Substance: GEMCITABINE\GEMCITABINE HYDROCHLORIDE
     Indication: PANCREATIC CARCINOMA
     Dosage: UNK

REACTIONS (3)
  - Pancreatic carcinoma [None]
  - Malignant neoplasm progression [None]
  - Disease progression [Fatal]
